FAERS Safety Report 13287980 (Version 1)
Quarter: 2017Q1

REPORT INFORMATION
  Report Type: Spontaneous
  Country: US (occurrence: US)
  Receive Date: 20170302
  Receipt Date: 20170302
  Transmission Date: 20170428
  Serious: Yes (Other)
  Sender: FDA-Public Use
  Company Number: US-DSJP-DSU-2017-106954

PATIENT

DRUGS (1)
  1. AZOR [Suspect]
     Active Substance: AMLODIPINE BESYLATE\OLMESARTAN MEDOXOMIL
     Indication: PRODUCT USED FOR UNKNOWN INDICATION
     Dosage: UNK
     Dates: start: 2010

REACTIONS (8)
  - Cholecystectomy [Unknown]
  - Weight decreased [Unknown]
  - Abdominal pain [Unknown]
  - Vomiting [Unknown]
  - Diarrhoea [Unknown]
  - Anaemia [Unknown]
  - Vitamin D deficiency [Unknown]
  - Nausea [Unknown]
